FAERS Safety Report 11231280 (Version 1)
Quarter: 2015Q2

REPORT INFORMATION
  Report Type: Spontaneous
  Country: US (occurrence: None)
  Receive Date: 20150629
  Receipt Date: 20150629
  Transmission Date: 20150821
  Serious: Yes (Disabling)
  Sender: FDA-Public Use
  Company Number: None

PATIENT
  Age: 2 Month
  Sex: Male
  Weight: 102.06 kg

DRUGS (4)
  1. VALIUM (FOR TITRATION) [Concomitant]
  2. PROZAC [Concomitant]
     Active Substance: FLUOXETINE HYDROCHLORIDE
  3. CLONAZEPAM .5 TEVA [Suspect]
     Active Substance: CLONAZEPAM
     Indication: ANXIETY DISORDER
     Dosage: TAKEN BY MOUTH
     Dates: start: 20150506, end: 20150627
  4. GABAPENTIN. [Concomitant]
     Active Substance: GABAPENTIN

REACTIONS (2)
  - Drug dependence [None]
  - Drug withdrawal syndrome [None]

NARRATIVE: CASE EVENT DATE: 20150627
